FAERS Safety Report 17507108 (Version 1)
Quarter: 2020Q1

REPORT INFORMATION
  Report Type: Spontaneous
  Country: US (occurrence: US)
  Receive Date: 20200305
  Receipt Date: 20200305
  Transmission Date: 20200409
  Serious: No
  Sender: FDA-Public Use
  Company Number: US-BIOMARINAP-US-2019-127774

PATIENT
  Sex: Female
  Weight: 17.91 kg

DRUGS (1)
  1. KUVAN [Suspect]
     Active Substance: SAPROPTERIN DIHYDROCHLORIDE
     Indication: PHENYLKETONURIA
     Dosage: 400 MILLIGRAM, QD
     Route: 048

REACTIONS (6)
  - Anxiety [Unknown]
  - Aggression [Unknown]
  - Depression [Unknown]
  - Behaviour disorder [Unknown]
  - Nervousness [Unknown]
  - Psychomotor hyperactivity [Unknown]
